FAERS Safety Report 21576735 (Version 1)
Quarter: 2022Q4

REPORT INFORMATION
  Report Type: Spontaneous
  Country: CN (occurrence: None)
  Receive Date: 20221110
  Receipt Date: 20221110
  Transmission Date: 20230112
  Serious: Yes (Other)
  Sender: FDA-Public Use
  Company Number: CN-ROCHE-3216281

PATIENT
  Age: 53 Year
  Sex: Male

DRUGS (1)
  1. ALECENSA [Suspect]
     Active Substance: ALECTINIB HYDROCHLORIDE
     Indication: Lung neoplasm malignant
     Dosage: ON AN UNSPECIFIED DATE, THE PATIENT STARTED ALECTINIB FOR 1 MONTH.
     Route: 065

REACTIONS (1)
  - Pleural effusion [Not Recovered/Not Resolved]
